FAERS Safety Report 8559265-7 (Version None)
Quarter: 2012Q3

REPORT INFORMATION
  Report Type: 
  Country: None (occurrence: None)
  Receive Date: 20120802
  Receipt Date: 20120725
  Transmission Date: 20120928
  Serious: Yes (Hospitalization)
  Sender: FDA-Public Use
  Company Number: PHEH2012US014685

PATIENT
  Sex: Female

DRUGS (3)
  1. TEGRETOL-XR [Suspect]
     Dosage: 1200 MG, UNK
  2. CARBAMAZEPINE [Suspect]
  3. SIMVASTATIN [Concomitant]

REACTIONS (7)
  - MALAISE [None]
  - CONVULSION [None]
  - DEPRESSION [None]
  - DRUG INEFFECTIVE [None]
  - INTRAOCULAR PRESSURE INCREASED [None]
  - MIGRAINE [None]
  - DRUG LEVEL DECREASED [None]
